FAERS Safety Report 11431149 (Version 1)
Quarter: 2015Q3

REPORT INFORMATION
  Report Type: Spontaneous
  Country: US (occurrence: US)
  Receive Date: 20150828
  Receipt Date: 20150828
  Transmission Date: 20151125
  Serious: Yes (Hospitalization, Other)
  Sender: FDA-Public Use
  Company Number: US-ROCHE-1194538

PATIENT
  Age: 65 Year
  Sex: Female
  Weight: 55.39 kg

DRUGS (4)
  1. INCIVEK [Suspect]
     Active Substance: TELAPREVIR
     Indication: HEPATITIS C
     Route: 048
     Dates: start: 20130107, end: 20130207
  2. RIBAVIRIN. [Suspect]
     Active Substance: RIBAVIRIN
     Indication: HEPATITIS C
     Route: 048
     Dates: start: 20130107, end: 20130207
  3. PEGASYS [Suspect]
     Active Substance: PEGINTERFERON ALFA-2A
     Indication: PRODUCT USED FOR UNKNOWN INDICATION
     Route: 058
     Dates: start: 20130107, end: 20130207
  4. OTHER CONCOMITANT MEDICATIONS [Concomitant]
     Dosage: OTHER HEP C MEDICATIONS
     Route: 065

REACTIONS (5)
  - Lethargy [Recovering/Resolving]
  - Abasia [Not Recovered/Not Resolved]
  - Heart rate abnormal [Recovering/Resolving]
  - Pancytopenia [Recovering/Resolving]
  - Anaemia [Recovering/Resolving]

NARRATIVE: CASE EVENT DATE: 20130202
